FAERS Safety Report 7296800-3 (Version None)
Quarter: 2011Q1

REPORT INFORMATION
  Report Type: 
  Country: None (occurrence: None)
  Receive Date: 20110216
  Receipt Date: 20110207
  Transmission Date: 20110831
  Serious: Yes (Hospitalization, Other)
  Sender: FDA-Public Use
  Company Number: B0699992A

PATIENT
  Age: 43 Year
  Sex: Female

DRUGS (11)
  1. RYTHMOL [Suspect]
     Route: 065
     Dates: start: 20100301
  2. CIPRALEX [Suspect]
     Indication: DEPRESSION
     Route: 065
  3. WARFARIN SODIUM [Suspect]
     Indication: THROMBOSIS PROPHYLAXIS
     Dosage: 7MG PER DAY
     Route: 048
     Dates: start: 20090904
  4. METFORMIN [Concomitant]
  5. ATIVAN [Suspect]
     Route: 065
  6. PLACEBO [Suspect]
     Indication: THROMBOSIS PROPHYLAXIS
     Route: 048
     Dates: start: 20090904
  7. GLICLAZIDE [Concomitant]
  8. METOPROLOL TARTRATE [Suspect]
     Route: 065
  9. APIXABAN [Suspect]
     Indication: THROMBOSIS PROPHYLAXIS
     Dosage: 5MG TWICE PER DAY
     Route: 048
     Dates: start: 20090904
  10. CLONAZEPAM [Suspect]
     Route: 065
  11. EZETIMIBE [Concomitant]
     Dates: start: 20091125

REACTIONS (5)
  - SUICIDAL IDEATION [None]
  - OVERDOSE [None]
  - DEPRESSED LEVEL OF CONSCIOUSNESS [None]
  - HYPOXIA [None]
  - HYPOTENSION [None]
